FAERS Safety Report 9788254 (Version 3)
Quarter: 2014Q1

REPORT INFORMATION
  Report Type: Report from Study
  Country: BR (occurrence: BR)
  Receive Date: 20131230
  Receipt Date: 20140204
  Transmission Date: 20141002
  Serious: Yes (Hospitalization)
  Sender: FDA-Public Use
  Company Number: PHHY2013BR153128

PATIENT
  Sex: Female
  Weight: 64 kg

DRUGS (6)
  1. DIOVAN HCT [Suspect]
     Indication: CARDIAC DISORDER
     Dosage: 2 DF, A DAY (80/12.5MG)
     Route: 048
  2. DIOVAN HCT [Suspect]
     Indication: BLOOD PRESSURE ABNORMAL
     Dosage: 1 DF, A DAY (300/12.5MG)
     Route: 048
     Dates: end: 201305
  3. DIOVAN HCT [Suspect]
     Indication: OFF LABEL USE
  4. DILTIAZEM [Suspect]
     Indication: BLOOD PRESSURE ABNORMAL
     Dosage: 2 DF (60MG), A DAY
     Route: 048
     Dates: start: 201305, end: 20131215
  5. RIVOTRIL [Concomitant]
     Indication: PANIC DISORDER
     Dosage: UNK UKN, UNK
  6. TRYPTANOL//AMITRIPTYLINE HYDROCHLORIDE [Concomitant]
     Indication: PANIC DISORDER
     Dosage: UNK UKN, UNK

REACTIONS (4)
  - Transient ischaemic attack [Recovered/Resolved]
  - Blood pressure increased [Recovered/Resolved]
  - Malaise [Recovering/Resolving]
  - Drug ineffective [Unknown]
